FAERS Safety Report 25131691 (Version 2)
Quarter: 2025Q1

REPORT INFORMATION
  Report Type: Spontaneous
  Country: FR (occurrence: FR)
  Receive Date: 20250327
  Receipt Date: 20250331
  Transmission Date: 20250409
  Serious: Yes (Hospitalization)
  Sender: SANOFI AVENTIS
  Company Number: None

PATIENT
  Age: 87 Year
  Sex: Male
  Weight: 87 kg

DRUGS (3)
  1. EFANESOCTOCOG ALFA [Suspect]
     Active Substance: EFANESOCTOCOG ALFA
     Indication: Factor VIII deficiency
     Dosage: 4000 IU, QW
     Route: 065
     Dates: start: 20241015, end: 20250128
  2. APIXABAN [Suspect]
     Active Substance: APIXABAN
     Indication: Atrial fibrillation
     Route: 065
     Dates: start: 202311
  3. HEMLIBRA [Concomitant]
     Active Substance: EMICIZUMAB-KXWH
     Indication: Factor VIII deficiency
     Dates: start: 20241010, end: 20241010

REACTIONS (2)
  - Condition aggravated [Not Recovered/Not Resolved]
  - Haematoma evacuation [Not Recovered/Not Resolved]

NARRATIVE: CASE EVENT DATE: 20250130
